FAERS Safety Report 9154159 (Version 1)
Quarter: 2013Q1

REPORT INFORMATION
  Report Type: Spontaneous
  Country: US (occurrence: None)
  Receive Date: 20130306
  Receipt Date: 20130306
  Transmission Date: 20140127
  Serious: Yes (Life-Threatening)
  Sender: FDA-Public Use
  Company Number: None

PATIENT
  Age: 38 Year
  Sex: Female
  Weight: 63.5 kg

DRUGS (1)
  1. TRI-SPRINTEC [Suspect]
     Dosage: ONE PILL DAILY PO
     Route: 048
     Dates: start: 19960815, end: 20001001

REACTIONS (1)
  - Deep vein thrombosis [None]
